FAERS Safety Report 5657291-9 (Version None)
Quarter: 2008Q1

REPORT INFORMATION
  Report Type: 
  Country: None (occurrence: None)
  Receive Date: 20080310
  Receipt Date: 20080227
  Transmission Date: 20080703
  Serious: Yes (Hospitalization, Other)
  Sender: FDA-Public Use
  Company Number: AU-WYE-H02937308

PATIENT
  Sex: Female

DRUGS (5)
  1. PANTOPRAZOLE SODIUM [Suspect]
     Indication: ABDOMINAL OPERATION
     Route: 042
     Dates: start: 20080218, end: 20080227
  2. IMIPENEM [Concomitant]
     Dosage: UNKNOWN
     Route: 048
     Dates: end: 20080222
  3. ACETAMINOPHEN [Concomitant]
     Dosage: UNKNOWN
  4. LASIX [Concomitant]
     Dosage: UNKNOWN
  5. MORPHINE [Concomitant]
     Dosage: UNKNOWN

REACTIONS (1)
  - METABOLIC ALKALOSIS [None]
